FAERS Safety Report 8094387-9 (Version None)
Quarter: 2012Q1

REPORT INFORMATION
  Report Type: 
  Country: None (occurrence: None)
  Receive Date: 20120130
  Receipt Date: 20120124
  Transmission Date: 20120608
  Serious: Yes (Hospitalization)
  Sender: FDA-Public Use
  Company Number: US-BAYER-2011-117886

PATIENT
  Age: 40 Year
  Sex: Female
  Weight: 105.67 kg

DRUGS (5)
  1. BEYAZ [Suspect]
     Indication: POLYCYSTIC OVARIES
     Dosage: UNK
     Route: 048
     Dates: start: 20110701, end: 20111005
  2. BEYAZ [Suspect]
     Indication: DYSFUNCTIONAL UTERINE BLEEDING
  3. ZOLOFT [Concomitant]
     Indication: ANXIETY
  4. BEYAZ [Suspect]
     Indication: HYPERANDROGENISM
  5. ALBUTEROL [Concomitant]
     Indication: ASTHMA

REACTIONS (4)
  - DYSPNOEA [None]
  - THROMBOPHLEBITIS SUPERFICIAL [None]
  - PULMONARY EMBOLISM [None]
  - OEDEMA PERIPHERAL [None]
